FAERS Safety Report 7654017-4 (Version None)
Quarter: 2011Q3

REPORT INFORMATION
  Report Type: 
  Country: None (occurrence: None)
  Receive Date: 20110803
  Receipt Date: 20110721
  Transmission Date: 20111222
  Serious: Yes (Hospitalization)
  Sender: FDA-Public Use
  Company Number: PHHY2011US65690

PATIENT
  Sex: Female

DRUGS (10)
  1. EXJADE [Suspect]
     Route: 048
  2. NAPROBENE [Concomitant]
  3. NITROFURANTOIN [Concomitant]
  4. VITAMIN D [Concomitant]
  5. CYCLOBENZAPRINE [Concomitant]
  6. AMOXICILLIN [Concomitant]
  7. DIPHENOXYLATE HCL AND ATROPINE SULFATE [Concomitant]
  8. PROCTO-GLYVENOL [Concomitant]
  9. METRONIDAZOLE [Concomitant]
  10. AVELOX [Concomitant]

REACTIONS (6)
  - DIVERTICULUM [None]
  - GASTROENTERITIS [None]
  - DEHYDRATION [None]
  - SYNCOPE [None]
  - RENAL FAILURE ACUTE [None]
  - DIARRHOEA [None]
